FAERS Safety Report 4460487-5 (Version None)
Quarter: 2004Q3

REPORT INFORMATION
  Report Type: 
  Country: None (occurrence: None)
  Receive Date: 20040923
  Receipt Date: 20040914
  Transmission Date: 20050211
  Serious: Yes (Death)
  Sender: FDA-Public Use
  Company Number: 2004US000109

PATIENT
  Age: 41 Year
  Sex: Male
  Weight: 59.2 kg

DRUGS (6)
  1. PROGRAF [Suspect]
     Indication: IMMUNOSUPPRESSION
     Dosage: 2.00 MG, BD, ORAL
     Route: 048
     Dates: start: 20010205
  2. PREDNISONE [Concomitant]
  3. CELLCEPT [Concomitant]
  4. LANTUS [Concomitant]
  5. ZOCOR [Concomitant]
  6. ZESTRIL [Concomitant]

REACTIONS (1)
  - DEATH [None]
